FAERS Safety Report 17798934 (Version 1)
Quarter: 2020Q2

REPORT INFORMATION
  Report Type: Spontaneous
  Country: GB (occurrence: GB)
  Receive Date: 20200518
  Receipt Date: 20200518
  Transmission Date: 20200714
  Serious: Yes (Other)
  Sender: FDA-Public Use
  Company Number: GB-PFIZER INC-2020192000

PATIENT
  Age: 64 Year
  Sex: Male
  Weight: 63.5 kg

DRUGS (4)
  1. SODIUM CHLORIDE. [Suspect]
     Active Substance: SODIUM CHLORIDE
     Indication: NEOPLASM MALIGNANT
     Dosage: FREQUENCY: DAY 1 AND DAY 8 EVERY 21 DAYS, 0.9% SODIUM CHLORIDE 250 ML
     Route: 042
     Dates: start: 20191211, end: 20200414
  2. CISPLATIN. [Suspect]
     Active Substance: CISPLATIN
     Indication: NEOPLASM MALIGNANT
     Dosage: 44 MG, DAY 1 AND DAY 8 EVERY 21 DAYS
     Route: 042
     Dates: start: 20191211, end: 20200414
  3. BACTERIOSTATIC SODIUM CHLORIDE [Suspect]
     Active Substance: SODIUM CHLORIDE
     Indication: MEDICATION DILUTION
     Dosage: FREQUENCY: DAY 1 AND DAY 8 EVERY 21 DAYS, AS DILUENT TO GEMCITABINE
     Route: 042
     Dates: start: 20191211, end: 20200414
  4. GEMCITABINE HYDROCHLORIDE. [Suspect]
     Active Substance: GEMCITABINE HYDROCHLORIDE
     Indication: PANCREATIC CARCINOMA
     Dosage: 1710 MG, DAY 1 AND DAY 8 EVERY 21 DAYS
     Route: 042
     Dates: start: 20191211, end: 20200414

REACTIONS (1)
  - Thrombophlebitis [Unknown]

NARRATIVE: CASE EVENT DATE: 20200331
